FAERS Safety Report 22801143 (Version 3)
Quarter: 2024Q2

REPORT INFORMATION
  Report Type: Report from Study
  Country: CA (occurrence: CA)
  Receive Date: 20230809
  Receipt Date: 20240624
  Transmission Date: 20240716
  Serious: Yes (Hospitalization)
  Sender: FDA-Public Use
  Company Number: CA-SANDOZ-SDZ2023CA011055

PATIENT
  Age: 64 Year
  Sex: Female
  Weight: 74 kg

DRUGS (1)
  1. ANASTROZOLE [Suspect]
     Active Substance: ANASTROZOLE
     Indication: HER2 negative breast cancer
     Dosage: 1 MG, DIE
     Route: 048
     Dates: start: 20200225

REACTIONS (1)
  - Fractured sacrum [Recovered/Resolved]

NARRATIVE: CASE EVENT DATE: 20230701
